FAERS Safety Report 5085582-1 (Version None)
Quarter: 2006Q3

REPORT INFORMATION
  Report Type: 
  Country: None (occurrence: None)
  Receive Date: 20060822
  Receipt Date: 20060817
  Transmission Date: 20061208
  Serious: Yes (Hospitalization)
  Sender: FDA-Public Use
  Company Number: 2005029806

PATIENT
  Age: 34 Year
  Sex: Female
  Weight: 71.8 kg

DRUGS (16)
  1. FLOLAN [Suspect]
     Indication: PULMONARY HYPERTENSION
     Route: 042
     Dates: start: 20000215
  2. SILDENAFIL CITRATE [Suspect]
     Indication: PULMONARY HYPERTENSION
     Dosage: 40MG THREE TIMES PER DAY
     Route: 048
     Dates: start: 20041217
  3. ALDACTONE [Concomitant]
     Dates: start: 20010101
  4. POTASSIUM CHLORIDE [Concomitant]
     Dates: start: 20000101
  5. DIGOXIN [Concomitant]
     Dates: start: 20020101
  6. EPOGEN [Concomitant]
     Dates: start: 20040217
  7. COLACE [Concomitant]
     Dates: start: 20041119
  8. COMPAZINE [Concomitant]
     Dates: start: 20040212
  9. VITAMIN B-12 [Concomitant]
     Dates: start: 20041130
  10. IBUPROFEN [Concomitant]
     Dates: start: 20030101
  11. DIFLUCAN [Concomitant]
     Dates: start: 20041217
  12. ALPRAZOLAM [Concomitant]
     Dates: start: 20041223
  13. PEPCID AC [Concomitant]
     Dates: start: 20050129
  14. TUMS [Concomitant]
     Dates: start: 20050129
  15. REGLAN [Concomitant]
     Dates: start: 20050207
  16. PROTONIX [Concomitant]
     Dates: start: 20050203

REACTIONS (11)
  - ABDOMINAL DISTENSION [None]
  - CACHEXIA [None]
  - CARDIAC OUTPUT DECREASED [None]
  - DIARRHOEA [None]
  - FATIGUE [None]
  - MALAISE [None]
  - NAUSEA [None]
  - PULMONARY HYPERTENSION [None]
  - RENAL FAILURE ACUTE [None]
  - RIGHT VENTRICULAR FAILURE [None]
  - THERAPEUTIC AGENT TOXICITY [None]
